FAERS Safety Report 5259475-0 (Version None)
Quarter: 2007Q1

REPORT INFORMATION
  Report Type: 
  Country: None (occurrence: None)
  Receive Date: 20070305
  Receipt Date: 20070216
  Transmission Date: 20070707
  Serious: Yes (Other)
  Sender: FDA-Public Use
  Company Number: 2007RR-05879

PATIENT
  Age: 76 Year
  Sex: Male

DRUGS (9)
  1. IBUPROFEN [Suspect]
     Indication: ARTHRALGIA
     Dosage: SEE IMAGE
  2. ATENOLOL [Concomitant]
  3. CLONIDINE UNK TO UNK [Concomitant]
  4. LISINOPRIL (LISINOPRIL) UNKNOWN UNK TO UNK [Concomitant]
  5. ASPIRIN (ASPIRIN) UNKNOWN UNK TO UNK [Concomitant]
  6. VITAMIN C UNK TO UNK [Concomitant]
  7. LECITHIN UNK TO UNK [Concomitant]
  8. VITAMIN E UNK TO UNK [Concomitant]
  9. MULTIVITAMINS UNK TO UNK [Concomitant]

REACTIONS (1)
  - PSEUDODEMENTIA [None]
